FAERS Safety Report 5457031-2 (Version None)
Quarter: 2007Q3

REPORT INFORMATION
  Report Type: 
  Country: None (occurrence: None)
  Receive Date: 20070918
  Receipt Date: 20070430
  Transmission Date: 20080115
  Serious: Yes (Other)
  Sender: FDA-Public Use
  Company Number: US-ASTRAZENECA-2006UW28167

PATIENT
  Age: 504 Month
  Sex: Male
  Weight: 110.5 kg

DRUGS (6)
  1. SEROQUEL [Suspect]
     Indication: PARANOIA
     Dosage: 25-300 MG
     Route: 048
     Dates: start: 20000601, end: 20060101
  2. SEROQUEL [Suspect]
     Indication: ANXIETY
     Dosage: 25-300 MG
     Route: 048
     Dates: start: 20000601, end: 20060101
  3. STELAZINE [Concomitant]
     Dates: start: 19920101
  4. THORAZINE [Concomitant]
     Dates: start: 19920101
  5. TRAZODONE HCL [Concomitant]
     Dates: start: 19970101
  6. ZOLOFT [Concomitant]
     Dates: start: 20000101

REACTIONS (3)
  - BLOOD CHOLESTEROL INCREASED [None]
  - DIABETES MELLITUS [None]
  - DIABETIC KETOACIDOSIS [None]
